FAERS Safety Report 19856530 (Version 1)
Quarter: 2021Q3

REPORT INFORMATION
  Report Type: Spontaneous
  Country: CN (occurrence: CN)
  Receive Date: 20210920
  Receipt Date: 20210920
  Transmission Date: 20211014
  Serious: Yes (Other)
  Sender: FDA-Public Use
  Company Number: CN-ROCHE-2910411

PATIENT
  Age: 76 Year
  Sex: Male

DRUGS (4)
  1. SODIUM CHLORIDE. [Concomitant]
     Active Substance: SODIUM CHLORIDE
     Route: 041
     Dates: start: 20210712, end: 20210719
  2. OSELTAMIVIR [Suspect]
     Active Substance: OSELTAMIVIR
     Indication: PNEUMONIA
     Route: 048
     Dates: start: 20210712, end: 20210714
  3. MOXIFLOXACIN HYDROCHLORIDE AND SODIUM CHLORIDE [Suspect]
     Active Substance: MOXIFLOXACIN HYDROCHLORIDE
     Indication: PNEUMONIA
     Route: 041
     Dates: start: 20210712, end: 20210714
  4. CEFTRIAXONE SODIUM. [Concomitant]
     Active Substance: CEFTRIAXONE SODIUM
     Indication: PNEUMONIA
     Dosage: NOT ROCHE PRODUCT
     Route: 041
     Dates: start: 20210712, end: 20210719

REACTIONS (4)
  - Hallucination [Recovered/Resolved]
  - Irritability [Recovered/Resolved]
  - Blood pressure increased [Unknown]
  - Disorganised speech [Unknown]

NARRATIVE: CASE EVENT DATE: 20210714
